FAERS Safety Report 4863536-5 (Version None)
Quarter: 2005Q4

REPORT INFORMATION
  Report Type: 
  Country: None (occurrence: None)
  Receive Date: 20051222
  Receipt Date: 20050411
  Transmission Date: 20060501
  Serious: No
  Sender: FDA-Public Use
  Company Number: US-GLAXOSMITHKLINE-A0553884A

PATIENT

DRUGS (2)
  1. FLONASE [Suspect]
     Indication: INJECTION SITE REACTION
     Route: 061
  2. BETASERON [Concomitant]
     Dosage: 1CC ALTERNATE DAYS
     Route: 042
     Dates: start: 20041101

REACTIONS (1)
  - THERAPEUTIC RESPONSE UNEXPECTED [None]
